FAERS Safety Report 14183388 (Version 1)
Quarter: 2017Q4

REPORT INFORMATION
  Report Type: Spontaneous
  Country: TJ (occurrence: TJ)
  Receive Date: 20171113
  Receipt Date: 20171113
  Transmission Date: 20180321
  Serious: Yes (Hospitalization)
  Sender: FDA-Public Use
  Company Number: TJ-JNJFOC-20171102615

PATIENT
  Age: 62 Year
  Sex: Female
  Weight: 44 kg

DRUGS (6)
  1. BEDAQUILINE [Suspect]
     Active Substance: BEDAQUILINE
     Indication: TUBERCULOSIS
     Dosage: RECEIVED TREATMENT FOR 8 MONTHS
     Route: 048
     Dates: start: 20161226, end: 20170908
  2. PROTIONAMIDE [Suspect]
     Active Substance: PROTIONAMIDE
     Indication: TUBERCULOSIS
     Route: 048
     Dates: start: 20160903
  3. LINEZOLID. [Suspect]
     Active Substance: LINEZOLID
     Indication: TUBERCULOSIS
     Route: 048
     Dates: start: 20161226
  4. MOXIFLOXACINE [Suspect]
     Active Substance: MOXIFLOXACIN
     Indication: TUBERCULOSIS
     Route: 048
     Dates: start: 20161226
  5. AMIKACIN [Suspect]
     Active Substance: AMIKACIN
     Indication: TUBERCULOSIS
     Route: 065
     Dates: start: 20161226, end: 20170908
  6. CYCLOSERIN [Suspect]
     Active Substance: CYCLOSERINE
     Indication: TUBERCULOSIS
     Route: 048
     Dates: start: 20160903

REACTIONS (3)
  - Polyneuropathy [Recovering/Resolving]
  - Nephropathy [Recovering/Resolving]
  - Diabetic macroangiopathy [Recovering/Resolving]

NARRATIVE: CASE EVENT DATE: 20170905
